FAERS Safety Report 18936610 (Version 2)
Quarter: 2021Q1

REPORT INFORMATION
  Report Type: Other
  Country: ES (occurrence: ES)
  Receive Date: 20210225
  Receipt Date: 20210304
  Transmission Date: 20210420
  Serious: Yes (Other)
  Sender: FDA-Public Use
  Company Number: ES-ROCHE-2769158

PATIENT
  Age: 13 Year
  Sex: Female

DRUGS (2)
  1. RISDIPLAM. [Suspect]
     Active Substance: RISDIPLAM
     Indication: SPINAL MUSCULAR ATROPHY
     Dosage: 6.6 ML / DAY
     Route: 048
     Dates: start: 20201203, end: 20210118
  2. RISDIPLAM. [Suspect]
     Active Substance: RISDIPLAM
     Route: 048
     Dates: start: 20210202, end: 20210218

REACTIONS (2)
  - Hypersensitivity vasculitis [Unknown]
  - Upper respiratory tract infection [Unknown]

NARRATIVE: CASE EVENT DATE: 20210113
